FAERS Safety Report 8837956 (Version 1)
Quarter: 2012Q4

REPORT INFORMATION
  Report Type: 
  Country: US (occurrence: US)
  Receive Date: 20121012
  Receipt Date: 20121012
  Transmission Date: 20130627
  Serious: Yes (Other)
  Sender: FDA-Public Use
  Company Number: US-ROCHE-1135810

PATIENT
  Sex: Female

DRUGS (1)
  1. PROTROPIN [Suspect]
     Indication: DWARFISM
     Dosage: 2x5 mg
     Route: 030

REACTIONS (1)
  - Convulsion [Unknown]
